FAERS Safety Report 5355621-9 (Version None)
Quarter: 2007Q2

REPORT INFORMATION
  Report Type: 
  Country: None (occurrence: None)
  Receive Date: 20070613
  Receipt Date: 20070611
  Transmission Date: 20071010
  Serious: Yes (Hospitalization)
  Sender: FDA-Public Use
  Company Number: B0474519A

PATIENT
  Sex: Female

DRUGS (3)
  1. MODACIN [Suspect]
     Dosage: .5G TWICE PER DAY
     Route: 042
  2. GASTER [Concomitant]
     Indication: DRUG USE FOR UNKNOWN INDICATION
     Route: 048
  3. MUCOSTA [Concomitant]
     Indication: DRUG USE FOR UNKNOWN INDICATION
     Route: 048

REACTIONS (2)
  - DRUG ERUPTION [None]
  - LIVER DISORDER [None]
